FAERS Safety Report 5384743-1 (Version None)
Quarter: 2007Q3

REPORT INFORMATION
  Report Type: 
  Country: None (occurrence: None)
  Receive Date: 20070711
  Receipt Date: 20070703
  Transmission Date: 20080115
  Serious: Yes (Other)
  Sender: FDA-Public Use
  Company Number: CN-PFIZER INC-2007054386

PATIENT
  Age: 27 Year
  Sex: Female

DRUGS (1)
  1. VFEND [Suspect]
     Route: 042
     Dates: start: 20070628, end: 20070628

REACTIONS (2)
  - ANOXIA [None]
  - DYSPNOEA [None]
